FAERS Safety Report 5576533-1 (Version None)
Quarter: 2007Q4

REPORT INFORMATION
  Report Type: 
  Country: None (occurrence: None)
  Receive Date: 20071228
  Receipt Date: 20071221
  Transmission Date: 20080405
  Serious: Yes (Hospitalization)
  Sender: FDA-Public Use
  Company Number: B0499940A

PATIENT
  Age: 33 Year
  Sex: Female

DRUGS (6)
  1. COMBIVIR [Suspect]
     Indication: ANTIVIRAL PROPHYLAXIS
     Route: 048
     Dates: start: 20070911
  2. VIRAMUNE [Suspect]
     Indication: ANTIVIRAL PROPHYLAXIS
     Dosage: 200MG PER DAY
     Route: 048
     Dates: start: 20070911
  3. ACETAMINOPHEN [Concomitant]
  4. FERROUS SULFATE TAB [Concomitant]
  5. HYDRALAZINE [Concomitant]
  6. LOPRESSOR [Concomitant]

REACTIONS (7)
  - ABDOMINAL PAIN [None]
  - BLOOD PRESSURE FLUCTUATION [None]
  - HEADACHE [None]
  - INTRA-UTERINE DEATH [None]
  - OEDEMA PERIPHERAL [None]
  - PRE-ECLAMPSIA [None]
  - PROTEINURIA [None]
